FAERS Safety Report 6373988-X (Version None)
Quarter: 2009Q3

REPORT INFORMATION
  Report Type: 
  Country: None (occurrence: None)
  Receive Date: 20090924
  Receipt Date: 20090915
  Transmission Date: 20100115
  Serious: Yes (Other)
  Sender: FDA-Public Use
  Company Number: US-ROCHE-657078

PATIENT
  Sex: Male

DRUGS (2)
  1. PEG-INTERFERON A-2A (RO 25-8310) [Suspect]
     Indication: HEPATITIS C
     Dosage: FORM: PRE-FILLED SYRINGE; IN WEEK 36 OF TREATMENT
     Route: 065
     Dates: start: 20090102
  2. RIBAVIRIN [Suspect]
     Indication: HEPATITIS C
     Dosage: EVERYDAY, IN WEEK 36 OF TREATMENT
     Route: 065
     Dates: start: 20090102

REACTIONS (3)
  - FATIGUE [None]
  - HEPATIC NEOPLASM MALIGNANT [None]
  - NAUSEA [None]
